FAERS Safety Report 13698456 (Version 1)
Quarter: 2017Q2

REPORT INFORMATION
  Report Type: Spontaneous
  Country: US (occurrence: US)
  Receive Date: 20170628
  Receipt Date: 20170628
  Transmission Date: 20170830
  Serious: No
  Sender: FDA-Public Use
  Company Number: US-TARO-2017TAR00027

PATIENT
  Sex: Male
  Weight: 142.86 kg

DRUGS (1)
  1. AMMONIUM LACTATE LOTION 12% (BASE) [Suspect]
     Active Substance: AMMONIUM LACTATE
     Indication: SKIN DISORDER
     Dosage: UNK UNK, 2X/DAY
     Route: 061

REACTIONS (1)
  - Drug effect incomplete [Not Recovered/Not Resolved]
